FAERS Safety Report 5648039-2 (Version None)
Quarter: 2008Q1

REPORT INFORMATION
  Report Type: 
  Country: None (occurrence: None)
  Receive Date: 20080304
  Receipt Date: 20071119
  Transmission Date: 20080703
  Serious: No
  Sender: FDA-Public Use
  Company Number: US-BAYER-200714948NA

PATIENT
  Sex: Female

DRUGS (2)
  1. MIRENA [Suspect]
     Indication: DRUG USE FOR UNKNOWN INDICATION
     Route: 015
     Dates: start: 20071011, end: 20071115
  2. MIRENA [Suspect]
     Route: 015
     Dates: start: 20071115

REACTIONS (2)
  - INTRA-UTERINE CONTRACEPTIVE DEVICE REMOVAL [None]
  - IUCD COMPLICATION [None]
